FAERS Safety Report 9235618 (Version 1)
Quarter: 2013Q2

REPORT INFORMATION
  Report Type: Spontaneous
  Country: US (occurrence: US)
  Receive Date: 20130417
  Receipt Date: 20130417
  Transmission Date: 20140414
  Serious: Yes (Other)
  Sender: FDA-Public Use
  Company Number: US-ELI_LILLY_AND_COMPANY-US201304002801

PATIENT
  Age: 55 Year
  Sex: Female

DRUGS (10)
  1. FORTEO [Suspect]
     Indication: OSTEOPOROSIS
     Dosage: UNK, QD
     Dates: start: 20130301
  2. TOPAMAX [Concomitant]
     Dosage: 200 MG, EACH EVENING
  3. DEXLANSOPRAZOLE [Concomitant]
     Dosage: 60 MG, QD
  4. PHENERGAN                          /00033001/ [Concomitant]
     Dosage: 25 MG, PRN
  5. PROZAC [Concomitant]
     Dosage: 40 MG, BID
  6. KLONOPIN [Concomitant]
     Dosage: 5 MG, BID
  7. VITAMINS [Concomitant]
  8. FLOVENT [Concomitant]
     Indication: ASTHMA
     Dosage: 250 UG, PRN
  9. VITAMIN D3 [Concomitant]
  10. MULTIVITAMINS PLUS IRON [Concomitant]

REACTIONS (4)
  - Cerebrovascular accident [Unknown]
  - Pneumonia [Unknown]
  - Pleurisy [Unknown]
  - Intervertebral disc protrusion [Unknown]
